FAERS Safety Report 16579853 (Version 1)
Quarter: 2019Q3

REPORT INFORMATION
  Report Type: Spontaneous
  Country: CA (occurrence: CA)
  Receive Date: 20190716
  Receipt Date: 20190716
  Transmission Date: 20191004
  Serious: Yes (Other)
  Sender: FDA-Public Use
  Company Number: CA-PFIZER INC-2019300494

PATIENT
  Age: 42 Year
  Sex: Male

DRUGS (3)
  1. FOLIC ACID. [Concomitant]
     Active Substance: FOLIC ACID
     Dosage: 5 MG, 2X/WEEK
     Route: 048
  2. PREDNISONE. [Concomitant]
     Active Substance: PREDNISONE
     Dosage: 10 MG, UNK
  3. METHOTREXATE SODIUM. [Suspect]
     Active Substance: METHOTREXATE SODIUM
     Dosage: 2.5 MG, WEEKLY
     Route: 058
     Dates: start: 2015

REACTIONS (10)
  - Tenderness [Not Recovered/Not Resolved]
  - Lymphadenopathy [Unknown]
  - Uveitis [Unknown]
  - Iritis [Not Recovered/Not Resolved]
  - C-reactive protein increased [Unknown]
  - Drug ineffective [Not Recovered/Not Resolved]
  - Angiotensin converting enzyme increased [Unknown]
  - Bone lesion [Unknown]
  - Skin lesion [Not Recovered/Not Resolved]
  - Splenomegaly [Not Recovered/Not Resolved]
